FAERS Safety Report 18236891 (Version 1)
Quarter: 2020Q3

REPORT INFORMATION
  Report Type: Spontaneous
  Country: US (occurrence: US)
  Receive Date: 20200907
  Receipt Date: 20200907
  Transmission Date: 20201103
  Serious: Yes (Other)
  Sender: FDA-Public Use
  Company Number: US-HETERO-HET2020US01001

PATIENT
  Age: 66 Year
  Sex: Male

DRUGS (8)
  1. SIMVASTATIN. [Suspect]
     Active Substance: SIMVASTATIN
     Indication: HYPERLIPIDAEMIA
     Dosage: 40 MG, QD
     Route: 065
  2. SIMVASTATIN. [Interacting]
     Active Substance: SIMVASTATIN
     Dosage: 20 MG, QD
     Route: 065
  3. PREDNISONE. [Concomitant]
     Active Substance: PREDNISONE
     Indication: PROSTATE CANCER METASTATIC
     Dosage: 5 MG, QD STARTED 3 MONTHS PRIOR
     Route: 065
  4. AMLODIPINE [Concomitant]
     Active Substance: AMLODIPINE BESYLATE
     Indication: HYPERTENSION
     Dosage: 5 MG, QD
     Route: 065
  5. ENZALUTAMIDE [Concomitant]
     Active Substance: ENZALUTAMIDE
     Indication: PROSTATE CANCER METASTATIC
  6. METOPROLOL. [Concomitant]
     Active Substance: METOPROLOL
     Indication: HYPERTENSION
     Dosage: 25 MG, BID TWICE A DAY (STARTED 3 YEARS PRIOR)
     Route: 065
  7. ENZALUTAMIDE [Concomitant]
     Active Substance: ENZALUTAMIDE
     Indication: DISEASE PROGRESSION
     Dosage: UNK
     Route: 065
  8. ABIRATERONE ACETATE. [Interacting]
     Active Substance: ABIRATERONE ACETATE
     Indication: PROSTATE CANCER METASTATIC
     Dosage: 1000 MG
     Route: 065

REACTIONS (2)
  - Drug interaction [Unknown]
  - Rhabdomyolysis [Recovering/Resolving]
